FAERS Safety Report 20592022 (Version 1)
Quarter: 2022Q1

REPORT INFORMATION
  Report Type: Spontaneous
  Country: CA (occurrence: CA)
  Receive Date: 20220314
  Receipt Date: 20220314
  Transmission Date: 20220423
  Serious: Yes (Other)
  Sender: FDA-Public Use
  Company Number: CA-PFIZER INC-202200380891

PATIENT
  Age: 52 Year
  Sex: Male
  Weight: 140 kg

DRUGS (43)
  1. AMLODIPINE BESYLATE [Suspect]
     Active Substance: AMLODIPINE BESYLATE
     Indication: Secondary progressive multiple sclerosis
     Dosage: 10 MG
     Route: 048
  2. GABAPENTIN [Suspect]
     Active Substance: GABAPENTIN
     Dosage: 100 MG
     Route: 065
  3. BACLOFEN [Suspect]
     Active Substance: BACLOFEN
     Dosage: 10 MG
     Route: 048
  4. BACLOFEN [Suspect]
     Active Substance: BACLOFEN
     Dosage: 30 MG, 1 EVERY 8 HOURS
     Route: 048
  5. BISOPROLOL [Suspect]
     Active Substance: BISOPROLOL
     Indication: Secondary progressive multiple sclerosis
     Dosage: UNK
     Route: 046
  6. BISOPROLOL [Suspect]
     Active Substance: BISOPROLOL
     Dosage: UNK
     Route: 048
  7. DOXEPIN HYDROCHLORIDE [Suspect]
     Active Substance: DOXEPIN HYDROCHLORIDE
     Dosage: 0.6 MG
     Route: 065
  8. DOXEPIN HYDROCHLORIDE [Suspect]
     Active Substance: DOXEPIN HYDROCHLORIDE
     Dosage: 6 MG
     Route: 065
  9. PRAMIPEXOLE DIHYDROCHLORIDE [Suspect]
     Active Substance: PRAMIPEXOLE DIHYDROCHLORIDE
     Dosage: 0.25 MG
     Route: 048
  10. RABEPRAZOLE [Suspect]
     Active Substance: RABEPRAZOLE
     Dosage: UNK
     Route: 048
  11. REBIF [Suspect]
     Active Substance: INTERFERON BETA-1A
     Dosage: UNK
     Route: 058
  12. ROSUVASTATIN CALCIUM [Suspect]
     Active Substance: ROSUVASTATIN CALCIUM
     Dosage: 5 MG
     Route: 048
  13. TAMSULOSIN [Suspect]
     Active Substance: TAMSULOSIN
     Indication: Secondary progressive multiple sclerosis
     Dosage: UNK
     Route: 048
  14. TECFIDERA [Suspect]
     Active Substance: DIMETHYL FUMARATE
     Dosage: UNK
     Route: 065
  15. TECFIDERA [Suspect]
     Active Substance: DIMETHYL FUMARATE
     Dosage: UNK
     Route: 065
  16. DALFAMPRIDINE [Suspect]
     Active Substance: DALFAMPRIDINE
     Dosage: UNK
     Route: 065
  17. LORAZEPAM [Concomitant]
     Active Substance: LORAZEPAM
     Dosage: UNK
     Route: 046
  18. ALLOPURINOL [Concomitant]
     Active Substance: ALLOPURINOL
     Dosage: UNK
     Route: 048
  19. AMINOBENZOIC ACID [Concomitant]
     Active Substance: AMINOBENZOIC ACID
     Dosage: UNK
     Route: 065
  20. ASPIRIN [Concomitant]
     Active Substance: ASPIRIN
     Dosage: UNK
     Route: 065
  21. ASPIRIN [Concomitant]
     Active Substance: ASPIRIN
     Dosage: 81 MG
     Route: 065
  22. ATIVAN [Concomitant]
     Active Substance: LORAZEPAM
     Dosage: 0.5 MG
     Route: 065
  23. BIOTIN [Concomitant]
     Active Substance: BIOTIN
     Dosage: UNK
     Route: 065
  24. CALCIUM [Concomitant]
     Active Substance: CALCIUM
     Dosage: UNK
     Route: 065
  25. CALCIUM PANTOTHENATE [Concomitant]
     Active Substance: CALCIUM PANTOTHENATE
     Dosage: UNK
     Route: 065
  26. CALCIUM PHOSPHATE, DIBASIC, ANHYDROUS [Concomitant]
     Active Substance: CALCIUM PHOSPHATE, DIBASIC, ANHYDROUS
     Dosage: UNK
     Route: 065
  27. CHOLINE BITARTRATE [Concomitant]
     Active Substance: CHOLINE BITARTRATE
     Dosage: UNK
     Route: 065
  28. COBAMAMIDE [Concomitant]
     Active Substance: COBAMAMIDE
     Dosage: UNK
     Route: 065
  29. CODEINE [Concomitant]
     Active Substance: CODEINE
     Dosage: UNK
     Route: 065
  30. CUPRIC OXIDE/FOLIC ACID/NICOTINIC ACID/ZINC OXIDE [Concomitant]
     Dosage: UNK
     Route: 065
  31. DALFAMPRIDINE [Concomitant]
     Active Substance: DALFAMPRIDINE
     Dosage: UNK
     Route: 065
  32. FOLIC ACID [Concomitant]
     Active Substance: FOLIC ACID
     Dosage: UNK
     Route: 065
  33. INOSITOL [Concomitant]
     Active Substance: INOSITOL
     Dosage: UNK
     Route: 065
  34. PYRIDOXINE HYDROCHLORIDE [Concomitant]
     Active Substance: PYRIDOXINE HYDROCHLORIDE
     Dosage: UNK
     Route: 065
  35. RABEPRAZOLE SODIUM [Concomitant]
     Active Substance: RABEPRAZOLE SODIUM
     Dosage: UNK
  36. RABEPRAZOLE SODIUM [Concomitant]
     Active Substance: RABEPRAZOLE SODIUM
     Dosage: UNK
     Route: 065
  37. RIBOFLAVIN [Concomitant]
     Active Substance: RIBOFLAVIN
     Dosage: UNK
     Route: 065
  38. THIAMINE HYDROCHLORIDE [Concomitant]
     Active Substance: THIAMINE HYDROCHLORIDE
     Dosage: UNK
     Route: 065
  39. VITAMIN C [Concomitant]
     Active Substance: ASCORBIC ACID
     Dosage: UNK
     Route: 065
  40. VITAMIN D3 [Concomitant]
     Active Substance: CHOLECALCIFEROL
     Dosage: UNK
  41. VITAMIN D3 [Concomitant]
     Active Substance: CHOLECALCIFEROL
     Dosage: UNK
     Route: 065
  42. NICOTINAMIDE [Concomitant]
     Active Substance: NIACINAMIDE
  43. VITAMIN B12 [Concomitant]
     Active Substance: CYANOCOBALAMIN

REACTIONS (25)
  - Anxiety [Unknown]
  - Ataxia [Unknown]
  - Balance disorder [Unknown]
  - Bradycardia [Unknown]
  - Central nervous system lesion [Unknown]
  - Dizziness [Unknown]
  - Dysarthria [Unknown]
  - Erectile dysfunction [Unknown]
  - Fall [Unknown]
  - Gait spastic [Unknown]
  - Hypertonic bladder [Unknown]
  - Hypoaesthesia [Unknown]
  - Insomnia [Unknown]
  - Memory impairment [Unknown]
  - Micturition urgency [Unknown]
  - Monoparesis [Unknown]
  - Movement disorder [Unknown]
  - Multiple sclerosis relapse [Unknown]
  - Muscle spasticity [Unknown]
  - Needle fatigue [Unknown]
  - Nocturia [Unknown]
  - Pain [Unknown]
  - Pollakiuria [Unknown]
  - Relapsing-remitting multiple sclerosis [Unknown]
  - Off label use [Unknown]
